FAERS Safety Report 22116916 (Version 1)
Quarter: 2023Q1

REPORT INFORMATION
  Report Type: Spontaneous
  Country: US (occurrence: US)
  Receive Date: 20230320
  Receipt Date: 20230320
  Transmission Date: 20230418
  Serious: Yes (Other)
  Sender: FDA-Public Use
  Company Number: US-BAXTER-2023BAX015530

PATIENT
  Age: 25 Year
  Sex: Female

DRUGS (1)
  1. METOPROLOL TARTRATE [Suspect]
     Active Substance: METOPROLOL TARTRATE
     Indication: Heart rate abnormal
     Route: 065

REACTIONS (9)
  - Stevens-Johnson syndrome [Unknown]
  - Macule [Unknown]
  - Lip erosion [Unknown]
  - Chest pain [Unknown]
  - Pain in jaw [Unknown]
  - Pain in extremity [Unknown]
  - Pain [Unknown]
  - Rash [Unknown]
  - Mouth ulceration [Unknown]
